FAERS Safety Report 14171613 (Version 1)
Quarter: 2017Q4

REPORT INFORMATION
  Report Type: Spontaneous
  Country: US (occurrence: US)
  Receive Date: 20171108
  Receipt Date: 20171108
  Transmission Date: 20180321
  Serious: No
  Sender: FDA-Public Use
  Company Number: US-BAUSCH-BL-2017-009822

PATIENT
  Sex: Female

DRUGS (2)
  1. DEMSER [Suspect]
     Active Substance: METYROSINE
     Indication: PRODUCT USED FOR UNKNOWN INDICATION
     Route: 048
  2. DEMSER [Suspect]
     Active Substance: METYROSINE
     Dosage: DOSE HAS BEEN REDUCED
     Route: 048

REACTIONS (1)
  - Treatment noncompliance [Unknown]
